FAERS Safety Report 8812120 (Version 1)
Quarter: 2012Q4

REPORT INFORMATION
  Report Type: 
  Country: KR (occurrence: KR)
  Receive Date: 20120927
  Receipt Date: 20120927
  Transmission Date: 20130627
  Serious: Yes (Hospitalization)
  Sender: FDA-Public Use
  Company Number: KR-ELI_LILLY_AND_COMPANY-KR201209005317

PATIENT
  Age: 76 Year
  Sex: Male

DRUGS (2)
  1. HUMALOG 50% LISPRO, 50% NPL [Suspect]
     Indication: TYPE 2 DIABETES MELLITUS
     Dosage: 12 u, each morning
     Route: 058
     Dates: start: 201207
  2. HUMALOG 50% LISPRO, 50% NPL [Suspect]
     Dosage: 14 u, each evening
     Route: 058
     Dates: start: 201207

REACTIONS (2)
  - Diarrhoea [Recovering/Resolving]
  - Enteritis [Recovering/Resolving]
